FAERS Safety Report 4916533-5 (Version None)
Quarter: 2006Q1

REPORT INFORMATION
  Report Type: 
  Country: None (occurrence: None)
  Receive Date: 20060216
  Receipt Date: 20060216
  Transmission Date: 20060701
  Serious: Yes (Other)
  Sender: FDA-Public Use
  Company Number: None

PATIENT
  Sex: Female

DRUGS (2)
  1. DURAGESIC-100 [Suspect]
     Indication: HEADACHE
     Dosage: D/C 75 MCG CHANGE Q 3 DAYS
  2. DURAGESIC-100 [Suspect]
     Indication: PAIN
     Dosage: D/C 75 MCG CHANGE Q 3 DAYS

REACTIONS (1)
  - PHARMACEUTICAL PRODUCT COMPLAINT [None]
